FAERS Safety Report 5648400-6 (Version None)
Quarter: 2008Q1

REPORT INFORMATION
  Report Type: 
  Country: None (occurrence: None)
  Receive Date: 20080131
  Receipt Date: 20071018
  Transmission Date: 20080703
  Serious: No
  Sender: FDA-Public Use
  Company Number: 2005PV004635

PATIENT
  Age: 67 Year
  Sex: Male
  Weight: 124.7 kg

DRUGS (7)
  1. EXENATIDE (EXENATIDE)PEN, DISPOSABLE [Suspect]
     Indication: INSULIN-REQUIRING TYPE 2 DIABETES MELLITUS
     Dosage: 5, 10 UG, 2/D, SUBCUTANEOUS
     Route: 058
     Dates: start: 20060901
  2. EXENATIDE PEN, DISPOSABLE DEVICE (EXENATIDE PEN) [Concomitant]
  3. AVANDAMET [Concomitant]
  4. LASIX [Concomitant]
  5. LANTUS [Concomitant]
  6. HUMULIN R [Concomitant]
  7. HUMULIN N [Concomitant]

REACTIONS (2)
  - BLOOD GLUCOSE INCREASED [None]
  - WEIGHT DECREASED [None]
